FAERS Safety Report 23746183 (Version 2)
Quarter: 2024Q2

REPORT INFORMATION
  Report Type: Report from Study
  Country: US (occurrence: US)
  Receive Date: 20240416
  Receipt Date: 20240516
  Transmission Date: 20240715
  Serious: No
  Sender: FDA-Public Use
  Company Number: US-ACADIA PHARMACEUTICALS INC.-ACA-2024-PIM-001444

PATIENT
  Sex: Male

DRUGS (3)
  1. NUPLAZID [Suspect]
     Active Substance: PIMAVANSERIN TARTRATE
     Indication: Parkinson^s disease psychosis
     Dosage: 34 MILLIGRAM, QD
     Route: 048
     Dates: start: 20240308, end: 20240312
  2. OLANZAPINE [Concomitant]
     Active Substance: OLANZAPINE
     Indication: Delusion
  3. QUETIAPINE [Concomitant]
     Active Substance: QUETIAPINE
     Indication: Delusion

REACTIONS (1)
  - Drug ineffective [Unknown]
